FAERS Safety Report 17764293 (Version 1)
Quarter: 2020Q2

REPORT INFORMATION
  Report Type: Report from Study
  Country: None (occurrence: US)
  Receive Date: 20200511
  Receipt Date: 20200511
  Transmission Date: 20200714
  Serious: Yes (Other)
  Sender: FDA-Public Use
  Company Number: US-ABBVIE-20K-163-3267873-00

PATIENT
  Sex: Male
  Weight: 95.34 kg

DRUGS (5)
  1. HUMIRA [Suspect]
     Active Substance: ADALIMUMAB
     Indication: ANKYLOSING SPONDYLITIS
     Dosage: CITRATE FREE
     Route: 058
     Dates: start: 20191031, end: 20191215
  2. MELOXICAM. [Concomitant]
     Active Substance: MELOXICAM
     Indication: AUTOIMMUNE DISORDER
  3. XYZAL [Concomitant]
     Active Substance: LEVOCETIRIZINE DIHYDROCHLORIDE
     Indication: HYPERSENSITIVITY
  4. SULFASALAZINE. [Concomitant]
     Active Substance: SULFASALAZINE
     Indication: AUTOIMMUNE DISORDER
  5. AZELASTINE. [Concomitant]
     Active Substance: AZELASTINE HYDROCHLORIDE
     Indication: HYPERSENSITIVITY

REACTIONS (2)
  - Neoplasm of appendix [Recovering/Resolving]
  - Appendicitis [Recovering/Resolving]
